FAERS Safety Report 9122674 (Version 1)
Quarter: 2013Q1

REPORT INFORMATION
  Report Type: Spontaneous
  Country: US (occurrence: US)
  Receive Date: 20130114
  Receipt Date: 20130114
  Transmission Date: 20140127
  Serious: Yes (Hospitalization)
  Sender: FDA-Public Use
  Company Number: US-BAYER-2013-003884

PATIENT
  Age: 39 Year
  Sex: Female
  Weight: 86.17 kg

DRUGS (6)
  1. YAZ [Suspect]
  2. YASMIN [Suspect]
  3. ALBUTEROL [Concomitant]
  4. AMBIEN [Concomitant]
     Dosage: UNK UNK, PRN
  5. CELEBREX [Concomitant]
     Dosage: UNK UNK, PRN
  6. PERCOCET [Concomitant]

REACTIONS (2)
  - Deep vein thrombosis [None]
  - Pulmonary embolism [None]
